FAERS Safety Report 7501459-3 (Version None)
Quarter: 2011Q2

REPORT INFORMATION
  Report Type: 
  Country: None (occurrence: None)
  Receive Date: 20110524
  Receipt Date: 20090216
  Transmission Date: 20111010
  Serious: Yes (Hospitalization, Other)
  Sender: FDA-Public Use
  Company Number: US-BAYER-200913080NA

PATIENT
  Age: 65 Year
  Sex: Female
  Weight: 79 kg

DRUGS (14)
  1. DIGOXIN [Concomitant]
     Dosage: 0.125 MG, QD
     Route: 048
     Dates: start: 20010724
  2. ETOMIDATE [Concomitant]
     Route: 042
  3. ACETYLSALICYLIC ACID SRT [Concomitant]
     Dosage: 81 MG, QD
     Route: 048
     Dates: start: 20010724
  4. PLAVIX [Concomitant]
     Dosage: 75 MG, QD
     Route: 048
     Dates: start: 20010724
  5. INSULIN [Concomitant]
     Dosage: 10
     Route: 042
  6. VANCOMYCIN [Concomitant]
     Dosage: 10
     Route: 042
  7. HEPARIN [Concomitant]
     Route: 042
  8. BAYCOL [Concomitant]
     Dosage: 08 DAILY
     Route: 048
     Dates: start: 20010724
  9. LASIX [Concomitant]
     Dosage: UNK
     Route: 048
     Dates: start: 20020101
  10. TRASYLOL [Suspect]
     Indication: CORONARY ARTERY BYPASS
     Dosage: UNK
     Route: 042
     Dates: start: 20020122
  11. ISOSORBIDE DINITRATE [Concomitant]
     Dosage: 30 MG, BID
     Route: 048
     Dates: start: 20010724
  12. HUMULIN N [Concomitant]
     Dosage: 25 U, QD
     Route: 058
  13. ZESTRIL [Concomitant]
     Dosage: 20 MG, BID
     Route: 048
     Dates: start: 20010724
  14. GLUCOPHAGE [Concomitant]
     Dosage: 500 MG, QD
     Route: 048

REACTIONS (8)
  - ANHEDONIA [None]
  - ANXIETY [None]
  - FEAR [None]
  - PAIN [None]
  - DEPRESSION [None]
  - RENAL FAILURE [None]
  - INJURY [None]
  - UNEVALUABLE EVENT [None]
